FAERS Safety Report 6606555-0 (Version None)
Quarter: 2010Q1

REPORT INFORMATION
  Report Type: 
  Country: None (occurrence: None)
  Receive Date: 20100226
  Receipt Date: 20100219
  Transmission Date: 20100710
  Serious: Yes (Hospitalization)
  Sender: FDA-Public Use
  Company Number: FI-CEPHALON-2010001133

PATIENT
  Sex: Male

DRUGS (9)
  1. TREANDA [Suspect]
     Indication: CHRONIC LYMPHOCYTIC LEUKAEMIA
     Dates: start: 20100203, end: 20100204
  2. SEROQUEL [Concomitant]
     Dates: start: 20090101
  3. TRAMAL [Concomitant]
     Dates: start: 20090101
  4. MABTHERA [Concomitant]
     Dates: start: 20100203
  5. SOLU-CORTEF [Concomitant]
     Dates: start: 20100203
  6. PANADOL [Concomitant]
     Dates: start: 20100203
  7. CETIRIZIN [Concomitant]
     Dates: start: 20100203
  8. AMLODIPINE [Concomitant]
     Dates: start: 20090101
  9. NITROSID [Concomitant]
     Dates: start: 20070101

REACTIONS (4)
  - BREATH SOUNDS ABNORMAL [None]
  - LIP OEDEMA [None]
  - PYREXIA [None]
  - URTICARIA [None]
